FAERS Safety Report 10177262 (Version 1)
Quarter: 2014Q2

REPORT INFORMATION
  Report Type: Spontaneous
  Country: US (occurrence: US)
  Receive Date: 20140516
  Receipt Date: 20140516
  Transmission Date: 20141212
  Serious: Yes (Other)
  Sender: FDA-Public Use
  Company Number: US-GLAXOSMITHKLINE-A1073335A

PATIENT
  Age: 56 Year
  Sex: Male

DRUGS (2)
  1. ADVAIR [Suspect]
     Indication: CHRONIC OBSTRUCTIVE PULMONARY DISEASE
     Dosage: 1PUFF TWICE PER DAY
     Route: 055
  2. ALBUTEROL [Concomitant]

REACTIONS (4)
  - Myocardial infarction [Recovering/Resolving]
  - Panic attack [Recovering/Resolving]
  - Heart rate increased [Recovering/Resolving]
  - Anxiety [Recovering/Resolving]
